FAERS Safety Report 18458756 (Version 1)
Quarter: 2020Q4

REPORT INFORMATION
  Report Type: Report from Study
  Country: JP (occurrence: JP)
  Receive Date: 20201103
  Receipt Date: 20201103
  Transmission Date: 20210114
  Serious: Yes (Hospitalization, Disabling)
  Sender: FDA-Public Use
  Company Number: JP-JNJFOC-A-CH2012-74131

PATIENT
  Age: 1 Year
  Sex: Male
  Weight: 11.1 kg

DRUGS (39)
  1. BRAZAVES [Suspect]
     Active Substance: MIGLUSTAT
     Dosage: 75 MG, QD
     Route: 048
     Dates: start: 20120619, end: 20120625
  2. BRAZAVES [Suspect]
     Active Substance: MIGLUSTAT
     Dosage: 100 MG, BID
     Route: 048
     Dates: start: 20130111, end: 20170607
  3. BACLOFEN. [Suspect]
     Active Substance: BACLOFEN
     Dosage: 5 MG, BID
     Route: 048
     Dates: end: 20190806
  4. CEFDITOREN PIVOXIL. [Concomitant]
     Active Substance: CEFDITOREN PIVOXIL
  5. FRADIOMYCIN CELLUDE [Concomitant]
  6. MIDAZOLAM. [Concomitant]
     Active Substance: MIDAZOLAM
  7. HYDROXYZINE [Concomitant]
     Active Substance: HYDROXYZINE HYDROCHLORIDE
  8. BRAZAVES [Suspect]
     Active Substance: MIGLUSTAT
     Indication: NIEMANN-PICK DISEASE
     Dosage: 50 MG, QD
     Route: 048
     Dates: start: 20120612, end: 20120618
  9. BRAZAVES [Suspect]
     Active Substance: MIGLUSTAT
     Dosage: 100 MG, TID
     Route: 048
     Dates: start: 20170608, end: 20170614
  10. BRAZAVES [Suspect]
     Active Substance: MIGLUSTAT
     Dosage: 100 MG, TID
     Route: 048
     Dates: start: 20190417
  11. CHLORAL HYDRATE [Concomitant]
     Active Substance: CHLORAL HYDRATE
  12. ELTACIN [Concomitant]
  13. HEPARINOID [Concomitant]
     Active Substance: CHONDROITIN SULFATE (BOVINE)
  14. BRAZAVES [Suspect]
     Active Substance: MIGLUSTAT
     Dosage: 100 MG, QD
     Route: 048
     Dates: start: 20120626, end: 20121215
  15. BACLOFEN. [Suspect]
     Active Substance: BACLOFEN
     Indication: PARALYSIS
     Dosage: 5 MG, TID
     Route: 048
     Dates: start: 20170606, end: 20170614
  16. UREA. [Concomitant]
     Active Substance: UREA
  17. DANTRIUM [Concomitant]
     Active Substance: DANTROLENE SODIUM
  18. BACLOFEN. [Suspect]
     Active Substance: BACLOFEN
     Route: 048
     Dates: start: 20190807, end: 20190919
  19. ALCLOMETASONE DIPROPIONATE. [Concomitant]
     Active Substance: ALCLOMETASONE DIPROPIONATE
  20. GENTAMICIN SULFAT [Concomitant]
  21. AZITHROM [Concomitant]
  22. AMOXICILLIN. [Concomitant]
     Active Substance: AMOXICILLIN
  23. SHAKUYAKUKANZOTO [Concomitant]
     Active Substance: HERBALS
  24. BRAZAVES [Suspect]
     Active Substance: MIGLUSTAT
     Dosage: 100 MG, QD
     Route: 048
     Dates: start: 20121222, end: 20130110
  25. BRAZAVES [Suspect]
     Active Substance: MIGLUSTAT
     Dosage: 100 MG, BID
     Route: 048
     Dates: start: 20170615, end: 20190416
  26. CLARITHROMYCIN. [Concomitant]
     Active Substance: CLARITHROMYCIN
  27. CLONAZEPAM. [Concomitant]
     Active Substance: CLONAZEPAM
  28. ACRINOL [Concomitant]
  29. PENTAZOCINE [Concomitant]
     Active Substance: PENTAZOCINE
  30. HYDROCORTISONE BUTYRATE. [Concomitant]
     Active Substance: HYDROCORTISONE BUTYRATE
  31. ACYCLOVIR                          /00587301/ [Concomitant]
     Active Substance: ACYCLOVIR
  32. AMBROXOL [Concomitant]
     Active Substance: AMBROXOL
  33. SENEGA [Concomitant]
  34. ANTIBIOTICS-RESISTANT LACTIC ACID BACTERIAE [Concomitant]
     Active Substance: UNSPECIFIED INGREDIENT
  35. PENTOBARBITAL CALCIUM [Concomitant]
     Active Substance: PENTOBARBITAL CALCIUM
  36. CERCINE [Concomitant]
     Active Substance: DIAZEPAM
     Indication: PRODUCT USED FOR UNKNOWN INDICATION
     Route: 048
     Dates: start: 20190925, end: 20190925
  37. DEXAMETHASONE VALERATE [Concomitant]
     Active Substance: DEXAMETHASONE VALERATE
     Indication: STOMATITIS
     Route: 049
     Dates: start: 10190613, end: 20190708
  38. ALIMEMAZINE TARTRATE [Concomitant]
     Active Substance: TRIMEPRAZINE
  39. TAMIFLU [Concomitant]
     Active Substance: OSELTAMIVIR PHOSPHATE
     Indication: PROPHYLAXIS
     Route: 048
     Dates: start: 20200109, end: 20200109

REACTIONS (38)
  - Exanthema subitum [Recovered/Resolved]
  - Gastroenteritis adenovirus [Recovered/Resolved]
  - Cataplexy [Not Recovered/Not Resolved]
  - Epistaxis [Recovered/Resolved]
  - Dermatitis diaper [Recovered/Resolved]
  - Paralysis [Not Recovered/Not Resolved]
  - Vomiting [Recovered/Resolved]
  - Rhinitis [Recovering/Resolving]
  - Cough [Recovered/Resolved]
  - Adenoidal hypertrophy [Recovering/Resolving]
  - Gait disturbance [Not Recovered/Not Resolved]
  - Gastroenteritis [Recovering/Resolving]
  - Activated partial thromboplastin time prolonged [Recovering/Resolving]
  - Anaemia [Recovering/Resolving]
  - Rash [Recovered/Resolved]
  - Splenomegaly [Not Recovered/Not Resolved]
  - Pyrexia [Recovered/Resolved]
  - Drug intolerance [Recovered/Resolved]
  - Rhinitis allergic [Recovering/Resolving]
  - Transfusion [Unknown]
  - Diarrhoea [Not Recovered/Not Resolved]
  - Upper respiratory tract inflammation [Recovering/Resolving]
  - Asteatosis [Recovered/Resolved]
  - Platelet count decreased [Recovering/Resolving]
  - Pancytopenia [Recovered/Resolved]
  - Haemoglobin decreased [Recovered/Resolved]
  - Pneumonia [Recovered/Resolved]
  - Brain stem auditory evoked response abnormal [Not Recovered/Not Resolved]
  - Upper respiratory tract infection [Recovered/Resolved]
  - Adenoidectomy [Unknown]
  - Dysphagia [Recovered/Resolved]
  - Influenza [Recovering/Resolving]
  - Blepharitis [Recovering/Resolving]
  - Sleep apnoea syndrome [Recovering/Resolving]
  - Otitis externa [Recovered/Resolved]
  - White blood cell count decreased [Recovering/Resolving]
  - Sinusitis [Recovering/Resolving]
  - Constipation [Recovering/Resolving]

NARRATIVE: CASE EVENT DATE: 2012
